FAERS Safety Report 18429957 (Version 2)
Quarter: 2021Q1

REPORT INFORMATION
  Report Type: Spontaneous
  Country: IT (occurrence: IT)
  Receive Date: 20201026
  Receipt Date: 20210203
  Transmission Date: 20210419
  Serious: Yes (Hospitalization)
  Sender: FDA-Public Use
  Company Number: IT-ALSI-202000440

PATIENT
  Age: 78 Year
  Sex: Female

DRUGS (1)
  1. OXYGEN. [Suspect]
     Active Substance: OXYGEN
     Indication: ASTHMA
     Route: 055

REACTIONS (3)
  - Accident [Recovered/Resolved]
  - Intentional product misuse [Recovered/Resolved]
  - Burns third degree [Recovered/Resolved]
